FAERS Safety Report 18572187 (Version 1)
Quarter: 2020Q4

REPORT INFORMATION
  Report Type: Spontaneous
  Country: GB (occurrence: GB)
  Receive Date: 20201203
  Receipt Date: 20201203
  Transmission Date: 20210114
  Serious: Yes (Other)
  Sender: FDA-Public Use
  Company Number: GB-JNJFOC-20201148364

PATIENT
  Age: 47 Year
  Sex: Male

DRUGS (18)
  1. FELODIPINE. [Concomitant]
     Active Substance: FELODIPINE
  2. DERMOL [Concomitant]
     Active Substance: BENZALKONIUM CHLORIDE\CHLORHEXIDINE HYDROCHLORIDE\ISOPROPYL MYRISTATE\PARAFFIN
  3. PARACETAMOL [Concomitant]
     Active Substance: ACETAMINOPHEN
  4. HYDROMOL [Concomitant]
     Route: 065
  5. ZOMORPH [Concomitant]
     Active Substance: MORPHINE SULFATE
  6. TRAMADOL. [Concomitant]
     Active Substance: TRAMADOL
  7. LAXIDO [Concomitant]
     Active Substance: POLYETHYLENE GLYCOL 3350\POTASSIUM CHLORIDE\SODIUM BICARBONATE\SODIUM CHLORIDE
  8. GAVISCON [Concomitant]
     Active Substance: ALUMINUM HYDROXIDE\MAGNESIUM CARBONATE
  9. ORLISTAT. [Concomitant]
     Active Substance: ORLISTAT
  10. ACITRETIN. [Concomitant]
     Active Substance: ACITRETIN
  11. PANTOPRAZOLE [Concomitant]
     Active Substance: PANTOPRAZOLE
  12. NITRAZEPAM [Concomitant]
     Active Substance: NITRAZEPAM
  13. CHLORPROMAZINE HYDROCHLORIDE. [Concomitant]
     Active Substance: CHLORPROMAZINE HYDROCHLORIDE
  14. STELARA [Suspect]
     Active Substance: USTEKINUMAB
     Indication: PSORIASIS
     Dosage: NOT KNOWN
     Route: 058
  15. SERTRALINE [Concomitant]
     Active Substance: SERTRALINE HYDROCHLORIDE
  16. DIAZEPAM. [Concomitant]
     Active Substance: DIAZEPAM
  17. LOSARTAN. [Concomitant]
     Active Substance: LOSARTAN
  18. DOSULEPIN HYDROCHLORIDE [Concomitant]
     Active Substance: DOTHIEPIN HYDROCHLORIDE

REACTIONS (8)
  - Ear pain [Not Recovered/Not Resolved]
  - Chest pain [Not Recovered/Not Resolved]
  - Dizziness [Not Recovered/Not Resolved]
  - Erythema [Not Recovered/Not Resolved]
  - Diarrhoea [Not Recovered/Not Resolved]
  - Abdominal pain [Not Recovered/Not Resolved]
  - Mastoid disorder [Not Recovered/Not Resolved]
  - Feeling hot [Not Recovered/Not Resolved]

NARRATIVE: CASE EVENT DATE: 20201025
